FAERS Safety Report 10262397 (Version 1)
Quarter: 2014Q2

REPORT INFORMATION
  Report Type: Spontaneous
  Country: US (occurrence: US)
  Receive Date: 20140626
  Receipt Date: 20140626
  Transmission Date: 20141212
  Serious: Yes (Other)
  Sender: FDA-Public Use
  Company Number: US-INCYTE CORPORATION-2014IN001764

PATIENT
  Age: 73 Year
  Sex: Female

DRUGS (11)
  1. JAKAFI [Suspect]
     Dosage: 20 MG, BID
     Route: 048
     Dates: start: 20140610
  2. ASPIRIN [Concomitant]
  3. B12                                /00056201/ [Concomitant]
  4. GLIPIZIDE [Concomitant]
  5. LANTUS [Concomitant]
  6. MULTIVITAMIN                       /07504101/ [Concomitant]
  7. NEXIUM                             /01479302/ [Concomitant]
  8. OXYCODONE [Concomitant]
  9. PHENAZOPYRIDINE [Concomitant]
  10. VITAMIN C                          /00008001/ [Concomitant]
  11. XANAX [Concomitant]

REACTIONS (4)
  - Blood pressure decreased [Recovering/Resolving]
  - Angioedema [Recovering/Resolving]
  - Pollakiuria [Recovering/Resolving]
  - Memory impairment [Recovering/Resolving]
